FAERS Safety Report 8357473-1 (Version None)
Quarter: 2012Q2

REPORT INFORMATION
  Report Type: 
  Country: None (occurrence: None)
  Receive Date: 20120514
  Receipt Date: 20120507
  Transmission Date: 20120825
  Serious: Yes (Hospitalization, Other)
  Sender: FDA-Public Use
  Company Number: US-BAYER-2012-002558

PATIENT
  Age: 29 Year
  Sex: Female
  Weight: 68.027 kg

DRUGS (6)
  1. POTASSIUM CHLORIDE [Concomitant]
     Route: 048
  2. BENTYL [Concomitant]
     Dosage: 20 MG, TID
  3. CEFTIN [Concomitant]
     Indication: URINARY TRACT INFECTION
     Dosage: 500 MG, BID
     Dates: start: 20090626
  4. YAZ [Suspect]
     Indication: ACNE
     Dosage: UNK
     Dates: start: 20081001, end: 20091101
  5. PROZAC [Concomitant]
     Dosage: 40 MG, UNK
     Route: 048
  6. BACTRIM DS [Concomitant]
     Indication: CELLULITIS
     Dosage: UNK UNK, BID
     Dates: start: 20090611

REACTIONS (8)
  - GASTRITIS [None]
  - POST PROCEDURAL BILE LEAK [None]
  - CHOLECYSTITIS CHRONIC [None]
  - CELLULITIS [None]
  - GASTROOESOPHAGEAL REFLUX DISEASE [None]
  - ABDOMINAL PAIN [None]
  - BILIARY TRACT DISORDER [None]
  - BILE DUCT STENT INSERTION [None]
